FAERS Safety Report 6406275-1 (Version None)
Quarter: 2009Q4

REPORT INFORMATION
  Report Type: 
  Country: None (occurrence: None)
  Receive Date: 20091019
  Receipt Date: 20091006
  Transmission Date: 20100525
  Serious: Yes (Disabling, Other)
  Sender: FDA-Public Use
  Company Number: PHEH2009US10966

PATIENT
  Sex: Female

DRUGS (4)
  1. GLEEVEC [Suspect]
     Indication: CHRONIC MYELOID LEUKAEMIA
     Dosage: 200 MG, UNK
     Route: 048
     Dates: start: 20081001, end: 20081201
  2. HYDREA [Suspect]
  3. VITAMINS [Concomitant]
  4. FISH OIL [Concomitant]

REACTIONS (4)
  - CATARACT [None]
  - CATARACT OPERATION [None]
  - PRURITUS [None]
  - RASH [None]
